FAERS Safety Report 24648691 (Version 1)
Quarter: 2024Q4

REPORT INFORMATION
  Report Type: Report from Study
  Country: US (occurrence: US)
  Receive Date: 20241121
  Receipt Date: 20241121
  Transmission Date: 20250115
  Serious: Yes (Life-Threatening, Other)
  Sender: BRISTOL-MYERS SQUIBB COMPANY
  Company Number: US-BRISTOL-MYERS SQUIBB COMPANY-2024-176435

PATIENT
  Age: 43 Year
  Sex: Female

DRUGS (1)
  1. COBENFY [Suspect]
     Active Substance: TROSPIUM CHLORIDE\XANOMELINE
     Indication: Schizoaffective disorder
     Dates: start: 202411, end: 20241115

REACTIONS (8)
  - Gastrooesophageal reflux disease [Recovering/Resolving]
  - Vision blurred [Recovered/Resolved]
  - Anaphylactic reaction [Recovering/Resolving]
  - Suicidal ideation [Recovering/Resolving]
  - Urinary retention [Unknown]
  - Off label use [Unknown]
  - Constipation [Unknown]
  - Dizziness [Unknown]

NARRATIVE: CASE EVENT DATE: 20241109
